FAERS Safety Report 4263642-2 (Version None)
Quarter: 2004Q1

REPORT INFORMATION
  Report Type: 
  Country: None (occurrence: None)
  Receive Date: 20040102
  Receipt Date: 20031217
  Transmission Date: 20041129
  Serious: Yes (Other)
  Sender: FDA-Public Use
  Company Number: US_980808580

PATIENT
  Age: 58 Year
  Sex: Female
  Weight: 73 kg

DRUGS (6)
  1. LENTE [Suspect]
     Indication: DIABETES MELLITUS
     Dosage: 76 U/DAY
     Dates: end: 19991101
  2. LENTE ILETIN II (PORK) [Suspect]
     Indication: DIABETES MELLITUS
     Dosage: 86 U/DAY
     Dates: start: 19910101
  3. HUMULIN R [Suspect]
     Indication: DIABETES MELLITUS
  4. HUMULIN N [Suspect]
     Indication: DIABETES MELLITUS NON-INSULIN-DEPENDENT
     Dates: start: 19940101, end: 19960101
  5. ILETIN [Suspect]
     Indication: DIABETES MELLITUS
     Dosage: 76 U/DAY
  6. HUMULIN-HUMAN INSULIN (RDNA) UNKNONW UNFORMULATION (HU [Suspect]
     Indication: DIABETES MELLITUS
     Dates: start: 19961214, end: 19971201

REACTIONS (5)
  - BLOOD GLUCOSE INCREASED [None]
  - EYE HAEMORRHAGE [None]
  - HYPOAESTHESIA [None]
  - PAIN IN EXTREMITY [None]
  - VISUAL DISTURBANCE [None]
